FAERS Safety Report 8558490-9 (Version None)
Quarter: 2012Q3

REPORT INFORMATION
  Report Type: 
  Country: None (occurrence: None)
  Receive Date: 20120801
  Receipt Date: 20120719
  Transmission Date: 20120928
  Serious: No
  Sender: FDA-Public Use
  Company Number: US-ASTRAZENECA-2012SE18604

PATIENT
  Age: 63 Year
  Sex: Female
  Weight: 66.2 kg

DRUGS (30)
  1. ATACAND [Suspect]
     Route: 048
  2. ATACAND [Suspect]
     Route: 048
     Dates: start: 20120316
  3. PAXIL [Concomitant]
  4. ASPIR-81 TBEC [Concomitant]
  5. CELEBREX [Concomitant]
  6. FEXOFENADINE [Concomitant]
  7. NAPROXEN [Concomitant]
  8. ATACAND [Suspect]
     Route: 048
  9. ATACAND [Suspect]
     Route: 048
     Dates: start: 20091008, end: 20111222
  10. SPIRIVA [Concomitant]
  11. HYDROCHLOROTHIAZIDE [Concomitant]
  12. NITROGLYCERIN [Concomitant]
  13. VENTOLIN HFA [Concomitant]
  14. BACTRIM DS [Concomitant]
  15. FERROUS SULFATE TAB [Concomitant]
  16. FLONASE [Concomitant]
  17. ATACAND [Suspect]
     Route: 048
  18. ATACAND [Suspect]
     Route: 048
     Dates: start: 20111221, end: 20120222
  19. MELOXICAM [Concomitant]
  20. FLECTOR [Concomitant]
  21. ATACAND [Suspect]
     Indication: HYPERTENSION
     Route: 048
     Dates: start: 20000101
  22. ATACAND [Suspect]
     Route: 048
  23. OMEPRAZOLE [Suspect]
     Route: 048
     Dates: start: 20101001
  24. ATACAND [Suspect]
     Route: 048
  25. ATACAND [Suspect]
     Route: 048
  26. MAXZIDE [Concomitant]
  27. SINGULAIR [Concomitant]
  28. KEFLEX [Concomitant]
  29. AUGMENTIN '500' [Concomitant]
  30. AMOXICILLIN [Concomitant]

REACTIONS (5)
  - BLOOD PRESSURE INCREASED [None]
  - INTENTIONAL DRUG MISUSE [None]
  - NASAL CONGESTION [None]
  - OROPHARYNGEAL PAIN [None]
  - OEDEMA PERIPHERAL [None]
